FAERS Safety Report 21194833 (Version 4)
Quarter: 2022Q4

REPORT INFORMATION
  Report Type: Spontaneous
  Country: CN (occurrence: CN)
  Receive Date: 20220810
  Receipt Date: 20221208
  Transmission Date: 20230112
  Serious: Yes (Hospitalization, Other)
  Sender: FDA-Public Use
  Company Number: CN-NOVARTISPH-NVSC2022CN180092

PATIENT
  Age: 62 Year
  Sex: Female
  Weight: 58 kg

DRUGS (5)
  1. ACLASTA [Suspect]
     Active Substance: ZOLEDRONIC ACID
     Indication: Bone density decreased
     Dosage: 100 ML
     Route: 041
     Dates: start: 20220728, end: 2022
  2. ACLASTA [Suspect]
     Active Substance: ZOLEDRONIC ACID
     Indication: Back pain
  3. ACLASTA [Suspect]
     Active Substance: ZOLEDRONIC ACID
     Indication: Musculoskeletal discomfort
  4. DEXAMETHASONE SODIUM PHOSPHATE [Concomitant]
     Active Substance: DEXAMETHASONE SODIUM PHOSPHATE
     Indication: Hypersensitivity
     Dosage: 10 MG (0.9% 500ML IVGTT)
     Route: 041
     Dates: start: 20220728
  5. DEXAMETHASONE SODIUM PHOSPHATE [Concomitant]
     Active Substance: DEXAMETHASONE SODIUM PHOSPHATE
     Dosage: 10 MG (0.9% 250ML IVGTT)
     Route: 041

REACTIONS (11)
  - Pyrexia [Recovered/Resolved]
  - Pain in jaw [Recovered/Resolved]
  - Back pain [Recovered/Resolved]
  - Decreased appetite [Recovered/Resolved]
  - Arthralgia [Recovered/Resolved]
  - Hyperpyrexia [Recovered/Resolved]
  - Hypokinesia [Recovered/Resolved]
  - C-reactive protein increased [Recovered/Resolved]
  - Pain [Recovered/Resolved]
  - Red blood cell sedimentation rate increased [Recovered/Resolved]
  - Neutrophil percentage increased [Recovered/Resolved]

NARRATIVE: CASE EVENT DATE: 20220729
